FAERS Safety Report 26126447 (Version 1)
Quarter: 2025Q4

REPORT INFORMATION
  Report Type: Spontaneous
  Country: US (occurrence: US)
  Receive Date: 20251205
  Receipt Date: 20251205
  Transmission Date: 20260117
  Serious: No
  Sender: Harrow Health
  Company Number: US-HARROW-HAR-2025-US-01311

PATIENT
  Sex: Female

DRUGS (1)
  1. VEVYE [Suspect]
     Active Substance: CYCLOSPORINE
     Dates: start: 20250602, end: 20250607

REACTIONS (1)
  - Joint swelling [Recovered/Resolved]
